FAERS Safety Report 14617306 (Version 1)
Quarter: 2018Q1

REPORT INFORMATION
  Report Type: Spontaneous
  Country: US (occurrence: US)
  Receive Date: 20180309
  Receipt Date: 20180309
  Transmission Date: 20180509
  Serious: Yes (Other)
  Sender: FDA-Public Use
  Company Number: US-JNJFOC-20180303155

PATIENT
  Age: 79 Year
  Sex: Female
  Weight: 79.38 kg

DRUGS (10)
  1. EFFEXOR [Concomitant]
     Active Substance: VENLAFAXINE HYDROCHLORIDE
     Dosage: ^225^
     Route: 065
  2. DOXIL [Suspect]
     Active Substance: DOXORUBICIN HYDROCHLORIDE
     Indication: BREAST CANCER METASTATIC
     Dosage: HALF DOSE EVERY 2 WEEKS
     Route: 042
     Dates: start: 201711, end: 201802
  3. DOXIL [Suspect]
     Active Substance: DOXORUBICIN HYDROCHLORIDE
     Indication: BREAST CANCER METASTATIC
     Dosage: ^HALF OF THE HALF DOSE EVERY 2 WEEKS
     Route: 042
     Dates: start: 201802
  4. ALBUTEROL. [Concomitant]
     Active Substance: ALBUTEROL
     Route: 065
  5. FAMOTIDINE. [Concomitant]
     Active Substance: FAMOTIDINE
     Route: 065
  6. FLONASE [Concomitant]
     Active Substance: FLUTICASONE PROPIONATE
     Route: 065
  7. ADVAIR HFA [Concomitant]
     Active Substance: FLUTICASONE PROPIONATE\SALMETEROL XINAFOATE
     Indication: ASTHMA
     Route: 065
  8. DOXAZOSIN [Concomitant]
     Active Substance: DOXAZOSIN\DOXAZOSIN MESYLATE
     Dosage: ^4^ AT NIGHT
     Route: 065
  9. DOXIL [Suspect]
     Active Substance: DOXORUBICIN HYDROCHLORIDE
     Indication: BREAST CANCER METASTATIC
     Route: 042
     Dates: start: 201707, end: 201711
  10. DOXAZOSIN [Concomitant]
     Active Substance: DOXAZOSIN\DOXAZOSIN MESYLATE
     Dosage: 6 IN THE MORNING
     Route: 065

REACTIONS (19)
  - Pyrexia [Unknown]
  - Malaise [Unknown]
  - Oral candidiasis [Unknown]
  - Pain of skin [Unknown]
  - Chest discomfort [Recovered/Resolved]
  - Eye discharge [Unknown]
  - Sinus pain [Unknown]
  - Constipation [Unknown]
  - Rhinorrhoea [Unknown]
  - Palmar-plantar erythrodysaesthesia syndrome [Not Recovered/Not Resolved]
  - Urinary tract infection [Unknown]
  - Ocular hyperaemia [Unknown]
  - Stomatitis [Unknown]
  - Skin discolouration [Unknown]
  - Rash [Recovered/Resolved]
  - Cellulitis [Recovered/Resolved]
  - Osteoarthritis [Unknown]
  - Eye swelling [Unknown]
  - Oropharyngeal pain [Unknown]

NARRATIVE: CASE EVENT DATE: 2017
